FAERS Safety Report 5726959-8 (Version None)
Quarter: 2008Q2

REPORT INFORMATION
  Report Type: 
  Country: None (occurrence: None)
  Receive Date: 20080501
  Receipt Date: 20070925
  Transmission Date: 20081010
  Serious: Yes (Other)
  Sender: FDA-Public Use
  Company Number: PHEH2007US03612

PATIENT
  Sex: Female

DRUGS (10)
  1. DIOVAN HCT [Suspect]
     Indication: HYPERTENSION
     Dosage: 160 VAL/25MG HCT, QD ; 320 MG VAL/25 GM HCT, QD
     Dates: start: 20061226, end: 20070117
  2. DIOVAN HCT [Suspect]
     Indication: HYPERTENSION
     Dosage: 160 VAL/25MG HCT, QD ; 320 MG VAL/25 GM HCT, QD
     Dates: start: 20070117
  3. ATENOLOL [Concomitant]
  4. SYNTHROID [Concomitant]
  5. MULTIVITAMINS (ASCORBIC ACID, ERGOCALCIFEROL, FOLIC ACID, NICOTINAMIDE [Concomitant]
  6. NEXIUM [Concomitant]
  7. PREMPRO [Concomitant]
  8. FOLIC ACID [Concomitant]
  9. ASPIRIN [Concomitant]
  10. VITAMIN E [Concomitant]

REACTIONS (5)
  - ASTHENIA [None]
  - DIZZINESS [None]
  - FEELING ABNORMAL [None]
  - HEART RATE INCREASED [None]
  - HYPOTENSION [None]
